FAERS Safety Report 8378801-7 (Version None)
Quarter: 2012Q2

REPORT INFORMATION
  Report Type: 
  Country: None (occurrence: None)
  Receive Date: 20120523
  Receipt Date: 20120504
  Transmission Date: 20120825
  Serious: Yes (Hospitalization, Other)
  Sender: FDA-Public Use
  Company Number: US-JNJCP-30000105373

PATIENT
  Age: 7 Month
  Sex: Male
  Weight: 10 kg

DRUGS (2)
  1. AVEENO BABY DAILY MOISTURE LOTION [Suspect]
     Indication: ECZEMA
     Dosage: A DOLLAR SIZE AMOUNT, TWICE A DAY
     Route: 061
     Dates: end: 20120503
  2. NONE [Concomitant]

REACTIONS (1)
  - STAPHYLOCOCCAL ABSCESS [None]
